FAERS Safety Report 12413888 (Version 1)
Quarter: 2016Q2

REPORT INFORMATION
  Report Type: Spontaneous
  Country: IT (occurrence: IT)
  Receive Date: 20160527
  Receipt Date: 20160527
  Transmission Date: 20160815
  Serious: Yes (Other)
  Sender: FDA-Public Use
  Company Number: ALCN2016IT003738

PATIENT

DRUGS (7)
  1. BSS [Suspect]
     Active Substance: CALCIUM CHLORIDE\MAGNESIUM CHLORIDE\POTASSIUM CHLORIDE\SODIUM ACETATE\SODIUM CHLORIDE\SODIUM CITRATE
     Indication: MEDICAL DEVICE IMPLANTATION
     Dosage: 1 DF, ONCE3SDO
     Route: 065
  2. BETAMETHASONE W/CHLORAMPHENICOL [Suspect]
     Active Substance: BETAMETHASONE\CHLORAMPHENICOL
     Indication: POSTOPERATIVE CARE
     Dosage: 1 DF, QID
     Route: 047
  3. CARBACOLO [Suspect]
     Active Substance: CARBACHOL
     Indication: MEDICAL DEVICE IMPLANTATION
     Dosage: 1 DF, ONCE/SINGLE
     Route: 031
  4. CYCLOPENTOLATE HYDROCHLORIDE. [Suspect]
     Active Substance: CYCLOPENTOLATE HYDROCHLORIDE
     Indication: POSTOPERATIVE CARE
     Dosage: 1 GTT, BID
     Route: 047
  5. MITOMYCIN C [Suspect]
     Active Substance: MITOMYCIN
     Dosage: A PIECE OF SPONGE WAS SOAKED AND PLACED UNDER THE DISSECTED SCLERAL FLAP
     Route: 065
  6. BSS [Suspect]
     Active Substance: CALCIUM CHLORIDE\MAGNESIUM CHLORIDE\POTASSIUM CHLORIDE\SODIUM ACETATE\SODIUM CHLORIDE\SODIUM CITRATE
     Dosage: 20 ML, ONCE/SINGLE
     Route: 065
  7. MITOMYCIN C [Suspect]
     Active Substance: MITOMYCIN
     Indication: MEDICAL DEVICE IMPLANTATION
     Dosage: 1 DF, ONCE/SINGLE
     Route: 065

REACTIONS (1)
  - Hyphaema [Unknown]
